FAERS Safety Report 5251276-2 (Version None)
Quarter: 2007Q1

REPORT INFORMATION
  Report Type: 
  Country: None (occurrence: None)
  Receive Date: 20070228
  Receipt Date: 20061221
  Transmission Date: 20070707
  Serious: No
  Sender: FDA-Public Use
  Company Number: US-GLAXOSMITHKLINE-A0632461A

PATIENT
  Sex: Male

DRUGS (4)
  1. LAMICTAL [Suspect]
     Indication: BIPOLAR DISORDER
     Dosage: 62.5MG PER DAY
     Route: 048
     Dates: start: 20060101
  2. ANAFRANIL [Suspect]
     Indication: OBSESSIVE-COMPULSIVE DISORDER
     Dosage: 25MG AT NIGHT
     Route: 048
     Dates: start: 20061216, end: 20061218
  3. RESTORIL [Suspect]
     Indication: INSOMNIA
     Route: 048
     Dates: start: 20060101, end: 20060101
  4. DEPAKOTE [Concomitant]

REACTIONS (4)
  - DRUG INEFFECTIVE [None]
  - DRUG INTERACTION [None]
  - INSOMNIA [None]
  - PARAESTHESIA [None]
